FAERS Safety Report 4545920-2 (Version None)
Quarter: 2005Q1

REPORT INFORMATION
  Report Type: 
  Country: None (occurrence: None)
  Receive Date: 20050106
  Receipt Date: 20040730
  Transmission Date: 20050727
  Serious: Yes (Other)
  Sender: FDA-Public Use
  Company Number: 200415786US

PATIENT
  Sex: Female

DRUGS (3)
  1. ALLEGRA-D [Suspect]
     Indication: SEASONAL ALLERGY
     Dosage: DOSE: 60/120
  2. ALEVE [Suspect]
     Indication: PAIN
     Dates: start: 20030801, end: 20031101
  3. TYLENOL [Suspect]
     Indication: PAIN

REACTIONS (16)
  - BILIARY CIRRHOSIS [None]
  - BLOOD CHOLESTEROL INCREASED [None]
  - BLOOD THYROID STIMULATING HORMONE INCREASED [None]
  - BLOOD UREA INCREASED [None]
  - CHRONIC HEPATITIS [None]
  - DIARRHOEA [None]
  - FLUID RETENTION [None]
  - HEPATIC CIRRHOSIS [None]
  - HEPATIC FIBROSIS [None]
  - HEPATITIS A ANTIBODY POSITIVE [None]
  - HEPATOSPLENOMEGALY [None]
  - HIGH DENSITY LIPOPROTEIN INCREASED [None]
  - LOW DENSITY LIPOPROTEIN INCREASED [None]
  - RHINITIS ALLERGIC [None]
  - SEASONAL ALLERGY [None]
  - TRANSFERRIN INCREASED [None]
